FAERS Safety Report 9842803 (Version 2)
Quarter: 2014Q1

REPORT INFORMATION
  Report Type: Spontaneous
  Country: FR (occurrence: FR)
  Receive Date: 20140124
  Receipt Date: 20140124
  Transmission Date: 20141002
  Serious: Yes (Death, Life-Threatening)
  Sender: FDA-Public Use
  Company Number: FR-BAXTER-2013BAX016970

PATIENT
  Age: 25 Year
  Sex: Female

DRUGS (3)
  1. HOLOXAN 2000 MG, POUDRE POUR USAGE PARENT?RAL [Suspect]
     Indication: EWING^S SARCOMA
     Route: 042
     Dates: start: 20130220, end: 20130222
  2. UROMITEXAN [Concomitant]
     Indication: EWING^S SARCOMA
     Route: 065
     Dates: start: 20130220
  3. DOXORUBICINE [Concomitant]
     Indication: EWING^S SARCOMA
     Route: 065
     Dates: start: 20130220

REACTIONS (2)
  - Encephalopathy [Not Recovered/Not Resolved]
  - Disease progression [Fatal]
